FAERS Safety Report 6526738-8 (Version None)
Quarter: 2009Q4

REPORT INFORMATION
  Report Type: 
  Country: None (occurrence: None)
  Receive Date: 20091214
  Receipt Date: 20081208
  Transmission Date: 20100525
  Serious: Yes (Other)
  Sender: FDA-Public Use
  Company Number: 601749

PATIENT
  Age: 50 Year
  Sex: Female

DRUGS (2)
  1. PEGASYS [Suspect]
     Indication: HEPATITIS C VIRUS TEST
     Dosage: 180 UG
  2. RIBAVIRIN [Suspect]
     Indication: HEPATITIS C VIRUS TEST
     Dosage: 3 DOSE FORM 2 PER DAY

REACTIONS (4)
  - DRUG ADMINISTRATION ERROR [None]
  - FATIGUE [None]
  - NAUSEA [None]
  - WHITE BLOOD CELL COUNT DECREASED [None]
